FAERS Safety Report 17718881 (Version 3)
Quarter: 2020Q4

REPORT INFORMATION
  Report Type: Spontaneous
  Country: US (occurrence: US)
  Receive Date: 20200428
  Receipt Date: 20201113
  Transmission Date: 20210113
  Serious: Yes (Other)
  Sender: FDA-Public Use
  Company Number: US-GILEAD-2020-0462088

PATIENT
  Sex: Male

DRUGS (2)
  1. VIREAD [Suspect]
     Active Substance: TENOFOVIR DISOPROXIL FUMARATE
     Indication: HIV INFECTION
     Dosage: UNK
     Route: 048
     Dates: start: 2003, end: 2010
  2. TRUVADA [Suspect]
     Active Substance: EMTRICITABINE\TENOFOVIR DISOPROXIL FUMARATE
     Indication: HIV INFECTION
     Dosage: UNK
     Route: 048
     Dates: start: 2010

REACTIONS (6)
  - Multiple fractures [Recovered/Resolved]
  - Emotional distress [Not Recovered/Not Resolved]
  - Osteoporosis [Recovered/Resolved]
  - Pain [Not Recovered/Not Resolved]
  - Renal injury [Unknown]
  - Osteomalacia [Not Recovered/Not Resolved]

NARRATIVE: CASE EVENT DATE: 2014
